FAERS Safety Report 18902243 (Version 2)
Quarter: 2021Q1

REPORT INFORMATION
  Report Type: Report from Study
  Country: None (occurrence: TR)
  Receive Date: 20210217
  Receipt Date: 20210307
  Transmission Date: 20210420
  Serious: Yes (Hospitalization)
  Sender: FDA-Public Use
  Company Number: TR-ABBVIE-21K-161-3776280-00

PATIENT
  Age: 64 Year
  Sex: Male

DRUGS (3)
  1. GYREX [Concomitant]
     Indication: PARKINSON^S DISEASE
     Route: 050
  2. DUODOPA [Suspect]
     Active Substance: CARBIDOPA\LEVODOPA
     Indication: PARKINSON^S DISEASE
     Dosage: MORNING DOSE(ML):7.50CONTINUES DOSE(ML):5.30 EXTRA DOSE(ML):1.00
     Route: 050
     Dates: start: 20161102
  3. DUODOPA [Suspect]
     Active Substance: CARBIDOPA\LEVODOPA

REACTIONS (4)
  - Blood urine present [Recovered/Resolved]
  - Calculus urinary [Recovered/Resolved]
  - Calculus bladder [Recovered/Resolved]
  - Urinary bladder haemorrhage [Recovered/Resolved]

NARRATIVE: CASE EVENT DATE: 20210205
